FAERS Safety Report 21678120 (Version 1)
Quarter: 2022Q4

REPORT INFORMATION
  Report Type: Spontaneous
  Country: US (occurrence: US)
  Receive Date: 20221203
  Receipt Date: 20221203
  Transmission Date: 20230113
  Serious: No
  Sender: FDA-Public Use
  Company Number: US-ABBVIE-4221110

PATIENT
  Sex: Female
  Weight: 68 kg

DRUGS (1)
  1. LUPRON DEPOT [Suspect]
     Active Substance: LEUPROLIDE ACETATE
     Indication: Endometriosis
     Dosage: FORM STRENGTH: 15 MILLIGRAM, END DATE: 2022
     Route: 030
     Dates: start: 202205

REACTIONS (6)
  - Product administration error [Unknown]
  - Abdominal pain [Not Recovered/Not Resolved]
  - Syringe issue [Not Recovered/Not Resolved]
  - Arthralgia [Not Recovered/Not Resolved]
  - Pain in extremity [Not Recovered/Not Resolved]
  - Back pain [Not Recovered/Not Resolved]

NARRATIVE: CASE EVENT DATE: 20220101
